FAERS Safety Report 18697313 (Version 1)
Quarter: 2021Q1

REPORT INFORMATION
  Report Type: Spontaneous
  Country: JP (occurrence: JP)
  Receive Date: 20210104
  Receipt Date: 20210104
  Transmission Date: 20210419
  Serious: Yes (Hospitalization, Other)
  Sender: FDA-Public Use
  Company Number: JP-PFIZER INC-2020512903

PATIENT
  Age: 70 Year
  Sex: Female
  Weight: 73 kg

DRUGS (20)
  1. UNASYN [Suspect]
     Active Substance: AMPICILLIN SODIUM\SULBACTAM SODIUM
     Indication: PHARYNGITIS BACTERIAL
  2. FEXOFENADINE HYDROCHLORIDE OD SAWAI [Concomitant]
     Indication: PRURITUS
     Dosage: 60 MG, AS NEEDED
  3. APRICOT KERNEL WATER SIOE [Concomitant]
     Indication: COUGH
     Dosage: 1 ML, AS NEEDED
  4. LOXOPROFEN EMEC [Concomitant]
     Active Substance: LOXOPROFEN
     Indication: PAIN
  5. CARVEDILOL SAWAI [Concomitant]
     Dosage: 10 MG, 2X/DAY (AFTER BREAKFAST + DINNER)
  6. LOXOPROFEN NA KAKEN [Concomitant]
     Dosage: 70 DF
  7. LEVOFLOXACIN OD TOWA [Concomitant]
     Dosage: 500 MG, 1X/DAY (AFTER BREAKFAST)
  8. LOXOPROFEN EMEC [Concomitant]
     Active Substance: LOXOPROFEN
     Indication: PYREXIA
     Dosage: 60 MG, AS NEEDED
  9. UNASYN [Suspect]
     Active Substance: AMPICILLIN SODIUM\SULBACTAM SODIUM
     Indication: NASOPHARYNGITIS
     Dosage: 1.5 G, DAILY
     Route: 042
     Dates: start: 20201019, end: 20201019
  10. PL [Concomitant]
     Active Substance: ACETAMINOPHEN\CAFFEINE\PROMETHAZINE\SALICYLAMIDE
     Dosage: 1 SACHET, 3X/DAY (AFTER EACH MEAL)
  11. SENEGA SIOE [Concomitant]
     Indication: COUGH
     Dosage: 3 ML, AS NEEDED
  12. TRANEXAMIC ACID YD [Concomitant]
     Dosage: 500 MG, 3X/DAY (AFTER EACH MEAL)
  13. AMLODIPINE OD SAWAI [Concomitant]
     Dosage: 10 MG, 1X/DAY (AFTER DINNER)
  14. REBAMIPIDE SAWAI [Concomitant]
     Dosage: 100 MG, 3X/DAY (AFTER EACH MEAL)
  15. AMBROXOL HYDROCHLORIDE PH [Concomitant]
     Indication: COUGH
     Dosage: 2 ML, AS NEEDED
  16. COIX SEED EXTRACT KOTARO [Concomitant]
     Dosage: 6 TABLETS, 3X/DAY (AFTER EACH MEAL)
  17. SEKICODE [AMMONIUM CHLORIDE;DIHYDROCODEINE PHOSPHATE;EPHEDRINE HYDROCH [Concomitant]
     Indication: COUGH
     Dosage: 3 ML, AS NEEDED
  18. OLMESARTAN OD SAWAI [Concomitant]
     Dosage: 40 MG, 1X/DAY (AFTER DINNER)
  19. ALDOMET [Concomitant]
     Active Substance: METHYLDOPA
     Dosage: 500 MG, 1X/DAY (AFTER DINNER)
  20. SELARA [Concomitant]
     Active Substance: EPLERENONE
     Dosage: 50 MG, 1X/DAY (AFTER BREAKFAST)

REACTIONS (5)
  - Blood pressure decreased [Recovering/Resolving]
  - Oxygen saturation decreased [Recovering/Resolving]
  - Loss of consciousness [Recovering/Resolving]
  - Anaphylactic shock [Recovering/Resolving]
  - Off label use [Unknown]

NARRATIVE: CASE EVENT DATE: 20201019
